FAERS Safety Report 11783620 (Version 4)
Quarter: 2019Q3

REPORT INFORMATION
  Report Type: Other
  Country: IT (occurrence: IT)
  Receive Date: 20151127
  Receipt Date: 20190723
  Transmission Date: 20191004
  Serious: Yes (Life-Threatening, Hospitalization, Other)
  Sender: FDA-Public Use
  Company Number: IT-APOTEX-2015AP014763

PATIENT
  Age: 72 Year
  Sex: Female

DRUGS (40)
  1. OLANZAPINE. [Suspect]
     Active Substance: OLANZAPINE
     Dosage: 2.5 MG, Q.H.S.
     Route: 048
     Dates: start: 201501, end: 201503
  2. LORAZEPAM. [Suspect]
     Active Substance: LORAZEPAM
     Dosage: 25 MG, QD
     Route: 048
  3. LOPRESOR                           /00376902/ [Suspect]
     Active Substance: METOPROLOL TARTRATE
     Indication: PRODUCT USED FOR UNKNOWN INDICATION
     Dosage: 25 MG DAILY IN THE MORNING
     Route: 048
  4. RIVOTRIL [Suspect]
     Active Substance: CLONAZEPAM
     Dosage: 1.8 MG, 28 GTT, Q.H.S
     Route: 065
  5. RIVOTRIL [Suspect]
     Active Substance: CLONAZEPAM
     Dosage: 10 GTT, UNK
     Route: 065
     Dates: start: 2015
  6. QUETIAPINE. [Suspect]
     Active Substance: QUETIAPINE
     Dosage: 25 MG, QD
     Route: 048
  7. ATORVASTATIN [Suspect]
     Active Substance: ATORVASTATIN
     Indication: PRODUCT USED FOR UNKNOWN INDICATION
     Dosage: 40 MG, Q.H.S.
     Route: 048
  8. LOPRESOR                           /00376902/ [Suspect]
     Active Substance: METOPROLOL TARTRATE
     Dosage: 25 MG, QD
     Route: 048
  9. BRILIQUE [Suspect]
     Active Substance: TICAGRELOR
     Indication: PRODUCT USED FOR UNKNOWN INDICATION
     Dosage: 90MG BID
     Route: 048
  10. PANTOPRAZOLE [Suspect]
     Active Substance: PANTOPRAZOLE
     Dosage: 20 MG, QD
     Route: 048
  11. OLANZAPINE. [Suspect]
     Active Substance: OLANZAPINE
     Dosage: 5 MG, Q.H.S. AT NIGHT
     Route: 065
     Dates: start: 201503, end: 2015
  12. LORAZEPAM. [Suspect]
     Active Substance: LORAZEPAM
     Dosage: UNK, 0.9 MG 18 DROPS
     Route: 065
     Dates: start: 2015, end: 2015
  13. RIVOTRIL [Suspect]
     Active Substance: CLONAZEPAM
     Dosage: 18 GTT, QD, 0.9 MG,
     Route: 065
  14. LEVOTHYROXINE SODIUM. [Suspect]
     Active Substance: LEVOTHYROXINE SODIUM
     Indication: PRODUCT USED FOR UNKNOWN INDICATION
     Dosage: UNK
     Route: 065
  15. PANTOPRAZOLE [Suspect]
     Active Substance: PANTOPRAZOLE
     Indication: PRODUCT USED FOR UNKNOWN INDICATION
     Dosage: 20 MG, Q.AM
     Route: 048
  16. ATORVASTATIN [Suspect]
     Active Substance: ATORVASTATIN
     Dosage: 40 MG, QD
     Route: 048
  17. CARDIOASPIRIN [Suspect]
     Active Substance: ASPIRIN
     Indication: PRODUCT USED FOR UNKNOWN INDICATION
     Dosage: UNK, QD
     Route: 065
  18. TRITTICO [Suspect]
     Active Substance: TRAZODONE HYDROCHLORIDE
     Indication: PRODUCT USED FOR UNKNOWN INDICATION
     Dosage: 15 DROPS DAILY IN THE EVENING, BEFORE GOING TO SLEEP
     Route: 065
  19. RIVOTRIL [Suspect]
     Active Substance: CLONAZEPAM
     Dosage: 1.8 MG, UNK
     Route: 065
  20. QUETIAPINE. [Suspect]
     Active Substance: QUETIAPINE
     Indication: PRODUCT USED FOR UNKNOWN INDICATION
     Dosage: 25 MG DAILY AT NIGHT BEFORE GOING TO SLEEP
     Route: 048
  21. OLANZAPINE. [Suspect]
     Active Substance: OLANZAPINE
     Indication: PRODUCT USED FOR UNKNOWN INDICATION
     Dosage: 2.5 MG, QD
     Route: 065
     Dates: start: 201501, end: 201503
  22. TRITTICO [Suspect]
     Active Substance: TRAZODONE HYDROCHLORIDE
     Dosage: 10 GTT, UNK
     Route: 065
     Dates: start: 2015
  23. TRIAZOLAM. [Suspect]
     Active Substance: TRIAZOLAM
     Indication: PRODUCT USED FOR UNKNOWN INDICATION
     Dosage: 29 DROPS AT NIGHT
     Route: 065
  24. TRIAZOLAM. [Suspect]
     Active Substance: TRIAZOLAM
     Dosage: 20 GTT, UNK
     Route: 065
  25. TRIAZOLAM. [Suspect]
     Active Substance: TRIAZOLAM
     Dosage: 0.25 MG, Q.H.S
     Route: 065
  26. OLANZAPINE. [Suspect]
     Active Substance: OLANZAPINE
     Dosage: 5 MG, QD
     Route: 065
  27. LORAZEPAM. [Suspect]
     Active Substance: LORAZEPAM
     Dosage: 1 MG, 20 GTT, Q.H.S
     Route: 065
     Dates: start: 2015, end: 2015
  28. TRITTICO [Suspect]
     Active Substance: TRAZODONE HYDROCHLORIDE
     Dosage: 13 GTT, UNK
     Route: 065
     Dates: start: 201501, end: 201507
  29. OLANZAPINE. [Suspect]
     Active Substance: OLANZAPINE
     Dosage: 2.5 MG AT NIGHT
     Route: 065
     Dates: start: 2015, end: 2015
  30. LORAZEPAM. [Suspect]
     Active Substance: LORAZEPAM
     Indication: PRODUCT USED FOR UNKNOWN INDICATION
     Dosage: 68 GTT DAILY
     Route: 065
  31. LORAZEPAM. [Suspect]
     Active Substance: LORAZEPAM
     Dosage: 0.75 MG, 15 GTT, QD
     Route: 065
     Dates: start: 2015, end: 2015
  32. LORAZEPAM. [Suspect]
     Active Substance: LORAZEPAM
     Dosage: 20 GTT, UNKNOWN
     Route: 065
  33. LORAZEPAM. [Suspect]
     Active Substance: LORAZEPAM
     Dosage: 1 MG, UNK
     Route: 065
  34. BRILIQUE [Suspect]
     Active Substance: TICAGRELOR
     Dosage: 90 MG, UNK
     Route: 065
  35. RIVOTRIL [Suspect]
     Active Substance: CLONAZEPAM
     Indication: PRODUCT USED FOR UNKNOWN INDICATION
     Dosage: 28 GTT DAILY
     Route: 065
  36. RIVOTRIL [Suspect]
     Active Substance: CLONAZEPAM
     Dosage: 15 GTT, QD
     Route: 065
     Dates: start: 2015, end: 2015
  37. RIVOTRIL [Suspect]
     Active Substance: CLONAZEPAM
     Dosage: 1.8 MG, 18 GTT, UNK
     Route: 065
     Dates: start: 2015, end: 2015
  38. TRITTICO [Suspect]
     Active Substance: TRAZODONE HYDROCHLORIDE
     Dosage: 60 MG/ML,  GTT, Q.H.S.
     Route: 065
  39. TRIAZOLAM. [Suspect]
     Active Substance: TRIAZOLAM
     Dosage: 0.25 MG, UNK
     Route: 065
  40. TIROSINT [Concomitant]
     Active Substance: LEVOTHYROXINE SODIUM
     Indication: HYPOTHYROIDISM
     Dosage: 25 MG, UNK
     Route: 065

REACTIONS (12)
  - Myocardial ischaemia [Unknown]
  - Epistaxis [Unknown]
  - Fatigue [Unknown]
  - Suicide attempt [Unknown]
  - Hypothyroidism [Unknown]
  - Discomfort [Unknown]
  - Dyspnoea [Unknown]
  - Malaise [Unknown]
  - Electrocardiogram T wave inversion [Unknown]
  - Feeling cold [Unknown]
  - Electrocardiogram QT prolonged [Unknown]
  - Weight increased [Unknown]

NARRATIVE: CASE EVENT DATE: 201507
